FAERS Safety Report 10227303 (Version 2)
Quarter: 2014Q2

REPORT INFORMATION
  Report Type: Spontaneous
  Country: US (occurrence: US)
  Receive Date: 20140610
  Receipt Date: 20140623
  Transmission Date: 20141212
  Serious: Yes (Other)
  Sender: FDA-Public Use
  Company Number: US-ELI_LILLY_AND_COMPANY-US201406000211

PATIENT
  Sex: Male

DRUGS (3)
  1. HUMULIN 30% REGULAR, 70% NPH [Suspect]
     Indication: DIABETES MELLITUS
     Route: 065
  2. HUMULIN 30% REGULAR, 70% NPH [Suspect]
     Indication: DIABETES MELLITUS
     Dosage: 40 U, EACH MORNING
     Route: 065
     Dates: start: 201405
  3. HUMULIN 30% REGULAR, 70% NPH [Suspect]
     Dosage: 32 U, EACH EVENING
     Route: 065
     Dates: start: 201405

REACTIONS (21)
  - Renal cancer [Recovered/Resolved]
  - Bladder cancer [Recovering/Resolving]
  - Urinary bladder haemorrhage [Unknown]
  - Urinary bladder polyp [Unknown]
  - Hypoaesthesia [Unknown]
  - Visual impairment [Unknown]
  - Disturbance in attention [Unknown]
  - Gait disturbance [Unknown]
  - Arthropathy [Unknown]
  - Hearing impaired [Unknown]
  - Confusional state [Unknown]
  - Dizziness postural [Unknown]
  - Mental impairment [Unknown]
  - Hypersomnia [Unknown]
  - Incorrect dose administered [Unknown]
  - Discomfort [Unknown]
  - Blood glucose increased [Unknown]
  - Infection [Unknown]
  - Bladder disorder [Unknown]
  - Anger [Unknown]
  - Slow response to stimuli [Unknown]
